FAERS Safety Report 8250663-8 (Version None)
Quarter: 2012Q1

REPORT INFORMATION
  Report Type: 
  Country: None (occurrence: None)
  Receive Date: 20120328
  Receipt Date: 20120316
  Transmission Date: 20120608
  Serious: Yes (Other)
  Sender: FDA-Public Use
  Company Number: 2013MA003787

PATIENT
  Sex: Female

DRUGS (3)
  1. ACETAMINOPHEN AND CODEINE PHOSPHATE [Concomitant]
  2. CITALOPRAM HYDROBROMIDE [Suspect]
     Indication: PRODUCT USED FOR UNKNOWN INDICATION
     Dosage: 20 MG; QD;PO
     Route: 048
  3. ESOMEPRAZOLE [Concomitant]

REACTIONS (3)
  - HALLUCINATION, VISUAL [None]
  - CONFUSIONAL STATE [None]
  - URINARY TRACT INFECTION [None]
